FAERS Safety Report 11389941 (Version 1)
Quarter: 2015Q3

REPORT INFORMATION
  Report Type: Report from Study
  Country: US (occurrence: US)
  Receive Date: 20150818
  Receipt Date: 20150818
  Transmission Date: 20151125
  Serious: Yes (Hospitalization)
  Sender: FDA-Public Use
  Company Number: PHEH2015US002224

PATIENT
  Sex: Female

DRUGS (1)
  1. CLOZARIL [Suspect]
     Active Substance: CLOZAPINE
     Indication: PRODUCT USED FOR UNKNOWN INDICATION
     Dosage: 225 OT, QD (50 QAM AND 175 QHS)
     Route: 065

REACTIONS (5)
  - Hypercalcaemia [Unknown]
  - Mental impairment [Unknown]
  - Seizure [Unknown]
  - Myoclonus [Unknown]
  - Urinary tract infection [Unknown]
